FAERS Safety Report 8846279 (Version 1)
Quarter: 2012Q4

REPORT INFORMATION
  Report Type: 
  Country: US (occurrence: US)
  Receive Date: 20121018
  Receipt Date: 20121018
  Transmission Date: 20130627
  Serious: No
  Sender: FDA-Public Use
  Company Number: US-009507513-1209USA008808

PATIENT
  Age: 18 Year
  Sex: Female

DRUGS (5)
  1. ATRIPLA [Suspect]
     Indication: HIV INFECTION
     Dosage: 1 DF, qd
     Route: 048
  2. LOPINAVIR (+) RITONAVIR [Suspect]
     Indication: HIV INFECTION
     Dosage: 4 DF, qd
     Route: 048
  3. TRUVADA [Suspect]
     Indication: HIV INFECTION
     Dosage: 1 DF, qd
     Route: 048
  4. LAMIVUDINE [Suspect]
     Indication: HIV INFECTION
     Dosage: 300 mg, qd
     Route: 048
  5. RALTEGRAVIR POTASSIUM [Suspect]
     Indication: HIV INFECTION
     Dosage: 800 mg, qd
     Route: 048

REACTIONS (1)
  - Pregnancy [Recovered/Resolved]
